FAERS Safety Report 24843026 (Version 1)
Quarter: 2025Q1

REPORT INFORMATION
  Report Type: Report from Study
  Country: US (occurrence: US)
  Receive Date: 20250115
  Receipt Date: 20250115
  Transmission Date: 20250408
  Serious: Yes (Hospitalization, Other)
  Sender: ABBVIE
  Company Number: US-ABBVIE-6082789

PATIENT
  Sex: Male

DRUGS (1)
  1. CREON [Suspect]
     Active Substance: PANCRELIPASE AMYLASE\PANCRELIPASE LIPASE\PANCRELIPASE PROTEASE
     Indication: Product used for unknown indication
     Route: 048
     Dates: start: 20240903

REACTIONS (6)
  - Volvulus [Recovered/Resolved]
  - Joint swelling [Not Recovered/Not Resolved]
  - Hernia [Recovered/Resolved]
  - Appendicectomy [Recovered/Resolved]
  - Postoperative abscess [Recovered/Resolved]
  - Pelvic floor dysfunction [Unknown]
